FAERS Safety Report 22023691 (Version 1)
Quarter: 2023Q1

REPORT INFORMATION
  Report Type: Spontaneous
  Country: CN (occurrence: CN)
  Receive Date: 20230223
  Receipt Date: 20230223
  Transmission Date: 20230417
  Serious: Yes (Hospitalization, Other)
  Sender: FDA-Public Use
  Company Number: CN-ORGANON-O2302CHN002068

PATIENT
  Age: 27 Year
  Sex: Female
  Weight: 50 kg

DRUGS (10)
  1. FOLLITROPIN BETA [Suspect]
     Active Substance: FOLLITROPIN BETA
     Indication: Ovulation induction
     Dosage: 120 INTERNATIONAL UNIT, QD
     Route: 058
     Dates: start: 20230124, end: 20230128
  2. FOLLITROPIN BETA [Suspect]
     Active Substance: FOLLITROPIN BETA
     Dosage: 125 INTERNATIONAL UNIT, QD
     Route: 058
     Dates: start: 20230129, end: 20230201
  3. FOLLITROPIN BETA [Suspect]
     Active Substance: FOLLITROPIN BETA
     Dosage: 150 INTERNATIONAL UNIT, QD
     Route: 058
     Dates: start: 20230202, end: 20230205
  4. MENOTROPINS [Suspect]
     Active Substance: MENOTROPINS
     Indication: Ovulation induction
     Dosage: 75 INTERNATIONAL UNIT, QD
     Dates: start: 20230129, end: 20230206
  5. MENOTROPINS [Suspect]
     Active Substance: MENOTROPINS
     Dosage: 225 INTERNATIONAL UNIT, QD
     Dates: start: 20230207, end: 20230207
  6. CHORIONIC GONADOTROPHIN [Suspect]
     Active Substance: CHORIOGONADOTROPIN ALFA
     Indication: Ovulation induction
     Dosage: 10000 INTERNATIONAL UNIT, QD
     Dates: start: 20230207, end: 20230207
  7. FOLLITROPIN ALFA [Suspect]
     Active Substance: FOLLITROPIN ALFA
     Indication: Ovulation induction
     Dosage: 75 INTERNATIONAL UNIT, QD
     Route: 058
     Dates: start: 20230207, end: 20230207
  8. LUTROPIN ALFA [Suspect]
     Active Substance: LUTROPIN ALFA
     Indication: Ovulation induction
     Dosage: 75 INTERNATIONAL UNIT, QD
     Route: 058
     Dates: start: 20230206, end: 20230207
  9. SODIUM CHLORIDE [Concomitant]
     Active Substance: SODIUM CHLORIDE
     Indication: Vehicle solution use
     Dosage: 1 MILLILITER, QD
     Route: 030
     Dates: start: 20230129, end: 20230207
  10. SODIUM CHLORIDE [Concomitant]
     Active Substance: SODIUM CHLORIDE
     Dosage: 2 MILLILITER, QD
     Route: 030
     Dates: start: 20230207, end: 20230207

REACTIONS (7)
  - Abdominal pain [Recovering/Resolving]
  - Abdominal distension [Recovering/Resolving]
  - Nausea [Recovering/Resolving]
  - Retching [Recovering/Resolving]
  - Diarrhoea [Recovering/Resolving]
  - Coagulation time shortened [Recovering/Resolving]
  - Ovarian hyperstimulation syndrome [Recovered/Resolved]

NARRATIVE: CASE EVENT DATE: 20230209
